FAERS Safety Report 7030617-X (Version None)
Quarter: 2010Q4

REPORT INFORMATION
  Report Type: 
  Country: None (occurrence: None)
  Receive Date: 20101006
  Receipt Date: 20100927
  Transmission Date: 20110411
  Serious: Yes (Hospitalization)
  Sender: FDA-Public Use
  Company Number: US-ROCHE-729989

PATIENT
  Sex: Female

DRUGS (2)
  1. PEGASYS [Suspect]
     Indication: HEPATITIS C
     Dosage: FORM: PRE-FILLED SYRINGE
     Route: 065
     Dates: start: 20100525, end: 20100810
  2. COPEGUS [Suspect]
     Indication: HEPATITIS C
     Route: 065
     Dates: start: 20100525, end: 20100810

REACTIONS (10)
  - ALOPECIA [None]
  - ANAEMIA [None]
  - BALANCE DISORDER [None]
  - DEPRESSION [None]
  - DIZZINESS [None]
  - FALL [None]
  - FATIGUE [None]
  - FULL BLOOD COUNT DECREASED [None]
  - LOSS OF CONSCIOUSNESS [None]
  - WEIGHT DECREASED [None]
